FAERS Safety Report 10901582 (Version 5)
Quarter: 2015Q2

REPORT INFORMATION
  Report Type: Report from Study
  Country: BE (occurrence: BE)
  Receive Date: 20150310
  Receipt Date: 20150521
  Transmission Date: 20150821
  Serious: Yes (Death, Hospitalization, Other)
  Sender: FDA-Public Use
  Company Number: BE-ABBVIE-13P-013-1094214-00

PATIENT
  Sex: Female

DRUGS (10)
  1. DUODOPA [Suspect]
     Active Substance: CARBIDOPA\LEVODOPA
     Dosage: AM: 1ML, CONTIN DOSE:1.9ML/H DURING 16HRS, EXTRA DOSE: 0.7ML
     Route: 050
     Dates: start: 20100913, end: 20130513
  2. DUODOPA [Suspect]
     Active Substance: CARBIDOPA\LEVODOPA
     Indication: PARKINSON^S DISEASE
     Route: 050
     Dates: start: 20080929, end: 20100913
  3. DUODOPA [Suspect]
     Active Substance: CARBIDOPA\LEVODOPA
     Dosage: AM DOSE= 1ML, CONTIN DOSE= 1.6ML/H DURING 16HRS, EXTRA DOSE=0.5ML
     Route: 050
     Dates: start: 20130709, end: 20131127
  4. DUODOPA [Suspect]
     Active Substance: CARBIDOPA\LEVODOPA
     Dosage: AM = 0 ML, CONTIN DOSE = 1.3 ML/H DURING 16H, EXTRA DOSE = 0.5ML
     Route: 050
     Dates: start: 20140428, end: 20141218
  5. DUODOPA [Suspect]
     Active Substance: CARBIDOPA\LEVODOPA
     Dosage: AM: 1ML, CONTIN DOSE:1.9ML/H DURING 16HRS, EXTRA DOSE: 0.5ML
     Route: 050
     Dates: start: 20130513, end: 20130603
  6. PROLOPA [Concomitant]
     Active Substance: BENSERAZIDE\LEVODOPA
     Indication: PARKINSON^S DISEASE
     Dosage: IN THE MORNING
     Route: 048
  7. DUODOPA [Suspect]
     Active Substance: CARBIDOPA\LEVODOPA
     Dosage: AM DOSE= 0.5ML, CONTIN DOSE= 1.9ML/H DURING 16HRS, EXTRA DOSE=0.5ML
     Route: 050
     Dates: start: 20130603, end: 20130709
  8. DUODOPA [Suspect]
     Active Substance: CARBIDOPA\LEVODOPA
     Dosage: AM:0ML; CD: 1.1ML/H FOR 16HRS; ED:0.5ML
     Route: 050
     Dates: start: 20141218
  9. DUODOPA [Suspect]
     Active Substance: CARBIDOPA\LEVODOPA
     Dosage: AM DOSE= 1ML, CONTIN DOSE= 1.5ML/H DURING 16HRS, EXTRA DOSE=0.5ML
     Route: 050
     Dates: start: 20131127, end: 20140207
  10. DUODOPA [Suspect]
     Active Substance: CARBIDOPA\LEVODOPA
     Dosage: AM = 0.5 ML, CONTIN DOSE = 1.5 ML/H DURING 16H, EXTRA DOSE =0.5 ML
     Route: 050
     Dates: start: 20140207, end: 20140428

REACTIONS (7)
  - Decreased appetite [Unknown]
  - Weight decreased [Unknown]
  - Asthenia [Unknown]
  - Dyskinesia [Recovering/Resolving]
  - Malaise [Unknown]
  - Gastroenteritis [Unknown]
  - General physical health deterioration [Fatal]
